FAERS Safety Report 11146461 (Version 1)
Quarter: 2015Q2

REPORT INFORMATION
  Report Type: Report from Study
  Country: US (occurrence: US)
  Receive Date: 20150528
  Receipt Date: 20150528
  Transmission Date: 20150821
  Serious: Yes (Other)
  Sender: FDA-Public Use
  Company Number: US-SA-2015SA000489

PATIENT
  Age: 51 Year
  Sex: Male

DRUGS (4)
  1. AUBAGIO [Suspect]
     Active Substance: TERIFLUNOMIDE
     Indication: MULTIPLE SCLEROSIS
     Route: 048
  2. AUBAGIO [Suspect]
     Active Substance: TERIFLUNOMIDE
     Indication: MULTIPLE SCLEROSIS
     Route: 048
     Dates: start: 20141211
  3. LITHIUM. [Concomitant]
     Active Substance: LITHIUM
  4. JANUMET [Concomitant]
     Active Substance: METFORMIN HYDROCHLORIDE\SITAGLIPTIN PHOSPHATE
     Dosage: DOSE: 50/1000

REACTIONS (13)
  - Decreased appetite [Unknown]
  - Blood glucose increased [Unknown]
  - Cholecystectomy [Unknown]
  - Anxiety [Unknown]
  - Weight decreased [Unknown]
  - Motion sickness [Unknown]
  - Cough [Unknown]
  - Drug dose omission [Unknown]
  - Nausea [Unknown]
  - Hepatic steatosis [Unknown]
  - Abdominal discomfort [Unknown]
  - Wheelchair user [Unknown]
  - Vomiting [Unknown]

NARRATIVE: CASE EVENT DATE: 201412
